APPROVED DRUG PRODUCT: METFORMIN HYDROCHLORIDE
Active Ingredient: METFORMIN HYDROCHLORIDE
Strength: 850MG
Dosage Form/Route: TABLET;ORAL
Application: A090666 | Product #002
Applicant: APOTEX INC
Approved: Dec 7, 2011 | RLD: No | RS: No | Type: DISCN